FAERS Safety Report 25355698 (Version 1)
Quarter: 2025Q2

REPORT INFORMATION
  Report Type: Spontaneous
  Country: GB (occurrence: GB)
  Receive Date: 20250525
  Receipt Date: 20250525
  Transmission Date: 20250717
  Serious: Yes (Other)
  Sender: AUROBINDO
  Company Number: GB-MHRA-MED-202505131510051280-VWQCH

PATIENT
  Age: 67 Year
  Sex: Female

DRUGS (1)
  1. AMLODIPINE [Suspect]
     Active Substance: AMLODIPINE BESYLATE
     Indication: Product used for unknown indication
     Dosage: UNK UNK, ONCE A DAY
     Route: 065
     Dates: end: 20250407

REACTIONS (1)
  - Periorbital oedema [Recovering/Resolving]

NARRATIVE: CASE EVENT DATE: 20250501
